FAERS Safety Report 5408230-7 (Version None)
Quarter: 2007Q3

REPORT INFORMATION
  Report Type: 
  Country: None (occurrence: None)
  Receive Date: 20070806
  Receipt Date: 20070806
  Transmission Date: 20080115
  Serious: Yes (Hospitalization)
  Sender: FDA-Public Use
  Company Number: None

PATIENT
  Age: 55 Year
  Sex: Male
  Weight: 113.2178 kg

DRUGS (1)
  1. SOTALOL HYDROCHLORIDE [Suspect]
     Indication: HEART RATE IRREGULAR
     Dosage: 120MG BID PO
     Route: 048
     Dates: start: 20070314, end: 20070402

REACTIONS (1)
  - TORSADE DE POINTES [None]
